FAERS Safety Report 4971140-3 (Version None)
Quarter: 2006Q1

REPORT INFORMATION
  Report Type: 
  Country: None (occurrence: None)
  Receive Date: 20060223
  Receipt Date: 20050624
  Transmission Date: 20060701
  Serious: Yes (Other)
  Sender: FDA-Public Use
  Company Number: HQWYE708727JUN05

PATIENT
  Age: 49 Year
  Sex: Female
  Weight: 52.21 kg

DRUGS (8)
  1. EFFEXOR [Suspect]
     Indication: ANXIETY
     Dosage: ORAL
     Route: 048
     Dates: start: 19960401
  2. EFFEXOR [Suspect]
     Indication: ANXIETY
     Dosage: SEE IMAGE
     Route: 048
     Dates: start: 20010101, end: 20040101
  3. EFFEXOR [Suspect]
     Indication: ANXIETY
     Dosage: SEE IMAGE
     Route: 048
     Dates: start: 19960401
  4. EFFEXOR [Suspect]
     Indication: ANXIETY
     Dosage: SEE IMAGE
     Route: 048
     Dates: start: 20040101
  5. LEVOXYL [Concomitant]
  6. PROTONIX [Concomitant]
  7. EVISTA [Concomitant]
  8. REMERON [Concomitant]

REACTIONS (2)
  - GLAUCOMA [None]
  - UVEITIS [None]
